FAERS Safety Report 5055623-6 (Version None)
Quarter: 2006Q3

REPORT INFORMATION
  Report Type: 
  Country: None (occurrence: None)
  Receive Date: 20060714
  Receipt Date: 20060627
  Transmission Date: 20061208
  Serious: Yes (Hospitalization, Other)
  Sender: FDA-Public Use
  Company Number: US200606006232

PATIENT
  Age: 93 Year
  Sex: Female

DRUGS (20)
  1. FORTEO [Suspect]
     Indication: OSTEOPOROSIS
     Dosage: SEE IMAGE
     Dates: start: 20031017, end: 20041201
  2. FORTEO [Suspect]
     Indication: OSTEOPOROSIS
     Dosage: SEE IMAGE
     Dates: start: 20041212, end: 20050201
  3. FORTEO [Suspect]
     Indication: OSTEOPOROSIS
     Dosage: SEE IMAGE
     Dates: start: 20050401
  4. FORTEO [Concomitant]
  5. AREDIA [Concomitant]
  6. BEXTRA [Concomitant]
  7. CYCLOBENZAPRINE HCL [Concomitant]
  8. ASPIRIN TAB [Concomitant]
  9. CALCIUM W/MAGNESIUM/VITAMIN D (CALCIUM, MAGNESIUM, VITAMIN D NOS) [Concomitant]
  10. LOTREL [Concomitant]
  11. TORSEMIDE [Concomitant]
  12. ZOCOR [Concomitant]
  13. PECTIN [Concomitant]
  14. BROMELAIN (BROMELAINS) [Concomitant]
  15. CALCIUM MAGNESIUM ZINC [Concomitant]
  16. NIACIN TIME (NICOTINIC ACID) [Concomitant]
  17. GARLIC [Concomitant]
  18. ALOE (ALOES) [Concomitant]
  19. HUMIBID (GUAIFENESIN) [Concomitant]
  20. CITRACAL + D (CALCIUM CITRATE, ERGOCALCIFEROL) [Concomitant]

REACTIONS (62)
  - ANAEMIA [None]
  - ANGINA PECTORIS [None]
  - ARTERIOSCLEROSIS [None]
  - ARTHRALGIA [None]
  - ARTHRITIS [None]
  - ASTHENIA [None]
  - BACK PAIN [None]
  - BALANCE DISORDER [None]
  - BLOOD HOMOCYSTEINE INCREASED [None]
  - BLOOD PRESSURE DIASTOLIC DECREASED [None]
  - BLOOD PRESSURE INCREASED [None]
  - BRONCHITIS [None]
  - BUTTOCK PAIN [None]
  - C-REACTIVE PROTEIN INCREASED [None]
  - CANALITH REPOSITIONING PROCEDURE [None]
  - CAROTID ARTERY ATHEROMA [None]
  - CAROTID ARTERY STENOSIS [None]
  - CAROTID BRUIT [None]
  - CHEST PAIN [None]
  - CHOKING [None]
  - CHONDROCALCINOSIS [None]
  - CONSTIPATION [None]
  - CONTUSION [None]
  - COUGH [None]
  - DEPRESSION [None]
  - DRY SKIN [None]
  - DYSPNOEA [None]
  - FALL [None]
  - FATIGUE [None]
  - FEMUR FRACTURE [None]
  - FRACTURE [None]
  - GASTROOESOPHAGEAL REFLUX DISEASE [None]
  - GENITAL BURNING SENSATION [None]
  - HEADACHE [None]
  - HEMIANOPIA [None]
  - HYPOTENSION [None]
  - INSOMNIA [None]
  - LETHARGY [None]
  - MIGRAINE [None]
  - MOBILITY DECREASED [None]
  - MUSCLE SPASMS [None]
  - MUSCULOSKELETAL PAIN [None]
  - NASAL CONGESTION [None]
  - NECK PAIN [None]
  - NEURITIS [None]
  - PAIN [None]
  - PALPITATIONS [None]
  - PERIARTHRITIS [None]
  - PHOTOPSIA [None]
  - POST PROCEDURAL COMPLICATION [None]
  - ROAD TRAFFIC ACCIDENT [None]
  - SOMNOLENCE [None]
  - SPINAL FRACTURE [None]
  - TENDON RUPTURE [None]
  - THORACIC VERTEBRAL FRACTURE [None]
  - TINNITUS [None]
  - TRANSIENT ISCHAEMIC ATTACK [None]
  - URINARY TRACT INFECTION [None]
  - VERTIGO POSITIONAL [None]
  - VISION BLURRED [None]
  - VITAMIN D DECREASED [None]
  - WEIGHT DECREASED [None]
